FAERS Safety Report 8785251 (Version 2)
Quarter: 2013Q4

REPORT INFORMATION
  Report Type: Spontaneous
  Country: US (occurrence: US)
  Receive Date: 20120914
  Receipt Date: 20131101
  Transmission Date: 20140711
  Serious: No
  Sender: FDA-Public Use
  Company Number: US-009507513-1207USA011240

PATIENT
  Age: 85 Year
  Sex: Female

DRUGS (2)
  1. DULERA [Suspect]
     Dosage: 100 MICROGRAM/5MICROGRAM, INHALER
     Route: 055
  2. OMNARIS [Concomitant]

REACTIONS (2)
  - Feeling jittery [Unknown]
  - Nervousness [Unknown]
